FAERS Safety Report 9723667 (Version 2)
Quarter: 2014Q1

REPORT INFORMATION
  Report Type: Spontaneous
  Country: FR (occurrence: FR)
  Receive Date: 20131202
  Receipt Date: 20140326
  Transmission Date: 20141002
  Serious: Yes (Hospitalization)
  Sender: FDA-Public Use
  Company Number: FR-GLAXOSMITHKLINE-B0947749A

PATIENT
  Age: 71 Year
  Sex: Male

DRUGS (13)
  1. ZELITREX [Suspect]
     Indication: PRODUCT USED FOR UNKNOWN INDICATION
     Dosage: 1000MG TWICE PER DAY
     Route: 048
     Dates: start: 20130924, end: 20130929
  2. BACTRIM FORT [Suspect]
     Indication: PRODUCT USED FOR UNKNOWN INDICATION
     Dosage: 1TAB THREE TIMES PER WEEK
     Route: 048
     Dates: start: 20130924, end: 20131029
  3. MABTHERA [Suspect]
     Indication: CHRONIC LYMPHOCYTIC LEUKAEMIA
     Dosage: 1100MG CYCLIC
     Route: 042
     Dates: start: 20130924, end: 20131026
  4. XATRAL LP [Suspect]
     Indication: PRODUCT USED FOR UNKNOWN INDICATION
     Dosage: 10MG PER DAY
     Route: 048
     Dates: start: 20131005, end: 20131101
  5. FLUDARA [Suspect]
     Indication: CHRONIC LYMPHOCYTIC LEUKAEMIA
     Dosage: 60MG CYCLIC
     Route: 048
     Dates: start: 20130924, end: 20131026
  6. ENDOXAN [Suspect]
     Indication: CHRONIC LYMPHOCYTIC LEUKAEMIA
     Dosage: 400MG CYCLIC
     Route: 048
     Dates: start: 20130924, end: 20131026
  7. INEXIUM [Concomitant]
     Dosage: 20MG PER DAY
  8. PRAVASTATINE [Concomitant]
  9. FLECAINE [Concomitant]
     Dosage: 100MG PER DAY
  10. KARDEGIC [Concomitant]
     Dosage: 160MG PER DAY
  11. METFORMINE [Concomitant]
     Dosage: 1000MG PER DAY
  12. INNOHEP [Concomitant]
     Dosage: .9ML PER DAY
     Dates: start: 201309
  13. GRANOCYTE [Concomitant]
     Dates: start: 20131030, end: 20131104

REACTIONS (9)
  - Drug reaction with eosinophilia and systemic symptoms [Recovered/Resolved]
  - Rash macular [Recovered/Resolved]
  - Pyrexia [Recovered/Resolved]
  - Inflammation [Recovered/Resolved]
  - Eosinophilia [Recovered/Resolved]
  - Leukocytosis [Recovered/Resolved]
  - Skin exfoliation [Recovered/Resolved]
  - Neutrophilia [Recovered/Resolved]
  - Monocytosis [Recovered/Resolved]
